FAERS Safety Report 11086432 (Version 1)
Quarter: 2015Q2

REPORT INFORMATION
  Report Type: Spontaneous
  Country: US (occurrence: None)
  Receive Date: 20150501
  Receipt Date: 20150501
  Transmission Date: 20150821
  Serious: Yes (Death, Hospitalization)
  Sender: FDA-Public Use
  Company Number: None

PATIENT
  Age: 60 Year
  Sex: Female
  Weight: 55.3 kg

DRUGS (18)
  1. METRONIADES [Concomitant]
  2. ZYRTEC [Concomitant]
     Active Substance: CETIRIZINE HYDROCHLORIDE
  3. BUMAX [Concomitant]
  4. RIBAVIRIN. [Suspect]
     Active Substance: RIBAVIRIN
     Indication: HEPATITIS C
     Route: 048
     Dates: start: 20140307, end: 20140430
  5. SOFOSBUVIR [Suspect]
     Active Substance: SOFOSBUVIR
     Route: 048
  6. ZOFRAN [Concomitant]
     Active Substance: ONDANSETRON HYDROCHLORIDE
  7. ALDACTONE [Concomitant]
     Active Substance: SPIRONOLACTONE
  8. MEPHYTON [Concomitant]
     Active Substance: PHYTONADIONE
  9. LEXAPRO [Concomitant]
     Active Substance: ESCITALOPRAM OXALATE
  10. ALBUTEROL. [Concomitant]
     Active Substance: ALBUTEROL
  11. NADOLOL. [Concomitant]
     Active Substance: NADOLOL
  12. RIFAXIMIN [Concomitant]
     Active Substance: RIFAXIMIN
  13. PROCRIT [Concomitant]
     Active Substance: ERYTHROPOIETIN
  14. KLOR-CON [Concomitant]
     Active Substance: POTASSIUM CHLORIDE
  15. COMPAZINE [Concomitant]
     Active Substance: PROCHLORPERAZINE MALEATE
  16. MAGNESIUM [Concomitant]
     Active Substance: MAGNESIUM
  17. LACTULOSE. [Concomitant]
     Active Substance: LACTULOSE
  18. CERFTRIAXON [Concomitant]

REACTIONS (15)
  - Hypotension [None]
  - Liver disorder [None]
  - Anuria [None]
  - Blood bilirubin increased [None]
  - Blood lactic acid increased [None]
  - Disease progression [None]
  - Renal replacement therapy [None]
  - Mental status changes [None]
  - Shock [None]
  - Lethargy [None]
  - Treatment noncompliance [None]
  - Infection [None]
  - Multi-organ failure [None]
  - Depressed level of consciousness [None]
  - Encephalopathy [None]

NARRATIVE: CASE EVENT DATE: 20140626
